FAERS Safety Report 12104222 (Version 1)
Quarter: 2016Q1

REPORT INFORMATION
  Report Type: Spontaneous
  Country: BR (occurrence: BR)
  Receive Date: 20160223
  Receipt Date: 20160223
  Transmission Date: 20160526
  Serious: Yes (Life-Threatening)
  Sender: FDA-Public Use
  Company Number: BR-FRESENIUS KABI-FK201600863

PATIENT

DRUGS (2)
  1. SCOPOLAMINE (MANUFACTURER UNKNOWN) [Suspect]
     Active Substance: SCOPOLAMINE
     Indication: UTERINE SPASM
     Route: 064
  2. METAMIZOLE (MANUFACTURER UNKNOWN) [Suspect]
     Active Substance: METAMIZOLE
     Indication: UTERINE SPASM
     Route: 064

REACTIONS (3)
  - Ductus arteriosus stenosis foetal [Unknown]
  - Off label use [Unknown]
  - Foetal exposure during pregnancy [Unknown]
